FAERS Safety Report 4669176-5 (Version None)
Quarter: 2005Q2

REPORT INFORMATION
  Report Type: 
  Country: None (occurrence: None)
  Receive Date: 20050519
  Receipt Date: 20050427
  Transmission Date: 20051028
  Serious: No
  Sender: FDA-Public Use
  Company Number: 10944

PATIENT
  Age: 79 Year
  Sex: Female

DRUGS (1)
  1. MILRINONE [Suspect]
     Indication: CARDIAC FAILURE
     Dosage: 0.25 MCG/KG PER MINUTE/0.2 MCG/KG PER MINUTE/0.1 MCG/KG PER MINUTE; INJ

REACTIONS (3)
  - ATRIAL FIBRILLATION [None]
  - DRUG LEVEL INCREASED [None]
  - HYPOTENSION [None]
